FAERS Safety Report 7374607-6 (Version None)
Quarter: 2011Q1

REPORT INFORMATION
  Report Type: 
  Country: None (occurrence: None)
  Receive Date: 20110325
  Receipt Date: 20100618
  Transmission Date: 20110831
  Serious: No
  Sender: FDA-Public Use
  Company Number: US-MYLANLABS-2010S1007940

PATIENT
  Age: 30 Year
  Sex: Female

DRUGS (6)
  1. FENTANYL-100 [Suspect]
     Route: 062
     Dates: start: 20090501, end: 20100301
  2. FENTANYL-100 [Suspect]
     Dosage: Q72HR
     Route: 062
     Dates: start: 20090201
  3. FENTANYL-100 [Suspect]
     Route: 062
     Dates: start: 20100320
  4. VICODIN [Concomitant]
     Dosage: 5/500MG
  5. FENTANYL-100 [Suspect]
     Route: 062
     Dates: start: 20060301
  6. FENTANYL-100 [Suspect]
     Indication: SCAR
     Route: 062
     Dates: start: 20060301, end: 20090501

REACTIONS (2)
  - SOMNAMBULISM [None]
  - INSOMNIA [None]
